FAERS Safety Report 12480301 (Version 1)
Quarter: 2016Q2

REPORT INFORMATION
  Report Type: Report from Study
  Country: DE (occurrence: DE)
  Receive Date: 20160620
  Receipt Date: 20160620
  Transmission Date: 20160815
  Serious: Yes (Hospitalization)
  Sender: FDA-Public Use
  Company Number: DE-ROCHE-1773658

PATIENT
  Age: 49 Year
  Sex: Female
  Weight: 62.7 kg

DRUGS (6)
  1. TAMOXIFEN [Concomitant]
     Active Substance: TAMOXIFEN
     Route: 065
     Dates: start: 20150603
  2. DOMINAL (GERMANY) [Concomitant]
     Indication: ANXIETY
     Route: 065
     Dates: start: 20150915
  3. AMLODIPIN [Concomitant]
     Active Substance: AMLODIPINE BESYLATE
     Indication: HYPERTENSION
     Route: 065
     Dates: start: 20150811
  4. TRASTUZUMAB EMTANSINE [Suspect]
     Active Substance: ADO-TRASTUZUMAB EMTANSINE
     Indication: BREAST CANCER
     Dosage: DATE OF LAST DOSE PRIOR TO AE ONSET: 25/JAN/2016?CYCLE: 1?START DATE FROM CYCLE FORM: 20/APR/2015?CY
     Route: 042
     Dates: start: 20150420
  5. CITALOPRAM [Concomitant]
     Active Substance: CITALOPRAM HYDROBROMIDE
     Indication: ANXIETY
     Route: 065
     Dates: start: 20150915
  6. IBUPROFEN. [Concomitant]
     Active Substance: IBUPROFEN
     Indication: BREAST RECONSTRUCTION
     Route: 065
     Dates: start: 20160212, end: 20160302

REACTIONS (2)
  - Post procedural haemorrhage [Recovered/Resolved]
  - Mastitis [Not Recovered/Not Resolved]

NARRATIVE: CASE EVENT DATE: 20160213
